FAERS Safety Report 24608494 (Version 2)
Quarter: 2025Q1

REPORT INFORMATION
  Report Type: Report from Study
  Country: US (occurrence: US)
  Receive Date: 20241112
  Receipt Date: 20250310
  Transmission Date: 20250409
  Serious: Yes (Other)
  Sender: UCB
  Company Number: US-UCBSA-2024057654

PATIENT
  Sex: Female

DRUGS (2)
  1. CERTOLIZUMAB PEGOL [Suspect]
     Active Substance: CERTOLIZUMAB PEGOL
     Indication: Rheumatoid arthritis
     Dosage: 400 MILLIGRAM, EV 2 WEEKS(QOW)
     Route: 058
     Dates: start: 20241010
  2. CERTOLIZUMAB PEGOL [Suspect]
     Active Substance: CERTOLIZUMAB PEGOL
     Indication: Ankylosing spondylitis
     Dosage: 400 MILLIGRAM, EV 4 WEEKS
     Route: 058

REACTIONS (8)
  - Loss of consciousness [Recovering/Resolving]
  - Ankylosing spondylitis [Unknown]
  - Nausea [Recovering/Resolving]
  - Injection site pain [Recovering/Resolving]
  - Injection site pain [Recovering/Resolving]
  - Dizziness [Recovering/Resolving]
  - Injection site reaction [Recovering/Resolving]
  - Stress [Unknown]

NARRATIVE: CASE EVENT DATE: 20240101
